FAERS Safety Report 7011079-5 (Version None)
Quarter: 2010Q3

REPORT INFORMATION
  Report Type: 
  Country: None (occurrence: None)
  Receive Date: 20100922
  Receipt Date: 20100922
  Transmission Date: 20110219
  Serious: Yes (Other)
  Sender: FDA-Public Use
  Company Number: None

PATIENT
  Age: 14 Year
  Sex: Male
  Weight: 89.8122 kg

DRUGS (2)
  1. QUETIAPINE [Suspect]
     Indication: SCHIZOAFFECTIVE DISORDER BIPOLAR TYPE
     Dosage: 800 MG DAILY AT BEDTIME PO
     Route: 048
     Dates: start: 20100505, end: 20100624
  2. CLOZAPINE [Suspect]
     Indication: SCHIZOAFFECTIVE DISORDER BIPOLAR TYPE
     Dosage: 100MG QAM AND 500MG QHS BID PO
     Route: 048
     Dates: start: 20100621, end: 20100809

REACTIONS (4)
  - EXERCISE LACK OF [None]
  - HUNGER [None]
  - NO THERAPEUTIC RESPONSE [None]
  - WEIGHT INCREASED [None]
